FAERS Safety Report 24445476 (Version 2)
Quarter: 2024Q4

REPORT INFORMATION
  Report Type: Spontaneous
  Country: IN (occurrence: IN)
  Receive Date: 20241016
  Receipt Date: 20241021
  Transmission Date: 20250114
  Serious: Yes (Hospitalization, Other)
  Sender: SANDOZ
  Company Number: IN-SANDOZ-SDZ2024IN081986

PATIENT
  Sex: Male

DRUGS (2)
  1. MYFORTIC [Suspect]
     Active Substance: MYCOPHENOLATE SODIUM
     Indication: Renal transplant
     Dosage: 360 MG, BID
     Route: 048
  2. TACROLIMUS [Suspect]
     Active Substance: TACROLIMUS
     Indication: Renal transplant
     Dosage: 2 MG, BID
     Route: 048

REACTIONS (5)
  - Urine flow decreased [Unknown]
  - Hypoglycaemia [Unknown]
  - Enterococcal infection [Unknown]
  - Electrolyte imbalance [Unknown]
  - Hypoalbuminaemia [Unknown]
